FAERS Safety Report 13292745 (Version 2)
Quarter: 2017Q2

REPORT INFORMATION
  Report Type: Spontaneous
  Country: US (occurrence: US)
  Receive Date: 20170303
  Receipt Date: 20170419
  Transmission Date: 20170830
  Serious: No
  Sender: FDA-Public Use
  Company Number: US-009507513-1702USA000783

PATIENT
  Age: 19 Year
  Sex: Female
  Weight: 108.84 kg

DRUGS (1)
  1. NEXPLANON [Suspect]
     Active Substance: ETONOGESTREL
     Indication: CONTRACEPTION
     Dosage: 1 IMPLANT EVERY 3 YEAR
     Route: 059
     Dates: start: 20160919

REACTIONS (4)
  - Product quality issue [Unknown]
  - Implant site pain [Unknown]
  - Migration of implanted drug [Unknown]
  - Device kink [Unknown]

NARRATIVE: CASE EVENT DATE: 20170201
